FAERS Safety Report 4499783-4 (Version None)
Quarter: 2004Q4

REPORT INFORMATION
  Report Type: 
  Country: None (occurrence: None)
  Receive Date: 20041108
  Receipt Date: 20041029
  Transmission Date: 20050328
  Serious: Yes (Hospitalization)
  Sender: FDA-Public Use
  Company Number: 2004-10-1524

PATIENT
  Age: 62 Year
  Sex: Female

DRUGS (18)
  1. INTRON A [Suspect]
     Indication: HEPATITIS C
     Dosage: 6 MIU TIW INTRAMUSCULAR
     Route: 030
     Dates: start: 20030623, end: 20041018
  2. REBETOL [Suspect]
     Indication: HEPATITIS C
     Dosage: 200- 400-200,ORAL
     Route: 048
     Dates: start: 20031001, end: 20031104
  3. REBETOL [Suspect]
     Indication: HEPATITIS C
     Dosage: 200- 400-200,ORAL
     Route: 048
     Dates: start: 20031112, end: 20031119
  4. REBETOL [Suspect]
     Indication: HEPATITIS C
     Dosage: 200- 400-200,ORAL
     Route: 048
     Dates: start: 20031001, end: 20031211
  5. REBETOL [Suspect]
     Indication: HEPATITIS C
     Dosage: 200- 400-200,ORAL
     Route: 048
     Dates: start: 20031203, end: 20031211
  6. ADALAT [Concomitant]
  7. DIOVAN TABLETS [Concomitant]
  8. BISOPROLOL FUMARATE [Concomitant]
  9. CONIEL (BENIDIPINE HCL) [Concomitant]
  10. MICARDIS [Concomitant]
  11. KEBERA G STRONG INJ. [Concomitant]
  12. STRONGER NEO MINOPHAGEN C INJECTABLE 2A [Concomitant]
  13. STONRGER NEO MINOPHAGEN C INJECTABLE 3A [Concomitant]
  14. STRONGER NEO MINOPHAGEN C INJECTABLE 4A [Concomitant]
  15. LIPOVAS TABLETS [Concomitant]
  16. PRAVASTATIN SODIUM TABLETS [Concomitant]
  17. PRAVASTATIN SODIUM TABLETS [Concomitant]
  18. URSO TABLETS [Concomitant]

REACTIONS (2)
  - ANAEMIA [None]
  - CEREBRAL HAEMORRHAGE [None]
